FAERS Safety Report 19298557 (Version 2)
Quarter: 2021Q3

REPORT INFORMATION
  Report Type: Spontaneous
  Country: US (occurrence: US)
  Receive Date: 20210525
  Receipt Date: 20210714
  Transmission Date: 20211014
  Serious: No
  Sender: FDA-Public Use
  Company Number: US-TEVA-2021-US-1907536

PATIENT
  Age: 24 Year
  Sex: Female

DRUGS (12)
  1. FOLIC ACID. [Concomitant]
     Active Substance: FOLIC ACID
  2. ZOLPIDEM [Concomitant]
     Active Substance: ZOLPIDEM TARTRATE
  3. ALPRAZOLAM. [Concomitant]
     Active Substance: ALPRAZOLAM
  4. GABAPENTIN. [Concomitant]
     Active Substance: GABAPENTIN
  5. AUSTEDO [Suspect]
     Active Substance: DEUTETRABENAZINE
     Dosage: WEEK 1 TITRATION
     Route: 065
     Dates: start: 20210423
  6. LORAZEPAM. [Concomitant]
     Active Substance: LORAZEPAM
  7. AUSTEDO [Suspect]
     Active Substance: DEUTETRABENAZINE
     Indication: TARDIVE DYSKINESIA
     Dosage: 12 MILLIGRAM DAILY;
     Route: 065
     Dates: start: 20210416
  8. BENADRYL [Concomitant]
     Active Substance: DIPHENHYDRAMINE HYDROCHLORIDE
  9. AMPHETAMINE [Concomitant]
     Active Substance: AMPHETAMINE
  10. AUSTEDO [Suspect]
     Active Substance: DEUTETRABENAZINE
     Dosage: 48 MILLIGRAM DAILY; 2 TABS (24MG) TWICE DAILY
     Route: 048
  11. GINKGO [Concomitant]
     Active Substance: GINKGO
  12. VITAMIN B12 [Concomitant]
     Active Substance: CYANOCOBALAMIN

REACTIONS (3)
  - Disturbance in attention [Not Recovered/Not Resolved]
  - Feeling abnormal [Not Recovered/Not Resolved]
  - Product dispensing error [Unknown]

NARRATIVE: CASE EVENT DATE: 202104
